FAERS Safety Report 9252519 (Version 1)
Quarter: 2013Q2

REPORT INFORMATION
  Report Type: Report from Study
  Country: AR (occurrence: AR)
  Receive Date: 20130424
  Receipt Date: 20130424
  Transmission Date: 20140414
  Serious: Yes (Other)
  Sender: FDA-Public Use
  Company Number: PHHY2013AR040182

PATIENT
  Sex: Male

DRUGS (2)
  1. DIOVAN [Suspect]
     Indication: HYPERTENSION
     Dosage: 160 MG, DAILY
     Route: 048
  2. DIOVAN [Suspect]
     Dosage: 0.5 DF, (160MG)

REACTIONS (4)
  - Ventricular arrhythmia [Not Recovered/Not Resolved]
  - Carotid artery occlusion [Unknown]
  - Blood creatinine increased [Unknown]
  - Wrong technique in drug usage process [Unknown]
